FAERS Safety Report 14013217 (Version 2)
Quarter: 2017Q4

REPORT INFORMATION
  Report Type: Spontaneous
  Country: CO (occurrence: CO)
  Receive Date: 20170926
  Receipt Date: 20171017
  Transmission Date: 20180321
  Serious: Yes (Other)
  Sender: FDA-Public Use
  Company Number: CO-PFIZER INC-2017369161

PATIENT
  Age: 50 Year
  Sex: Female

DRUGS (2)
  1. METHOTREXATE SODIUM. [Suspect]
     Active Substance: METHOTREXATE SODIUM
     Indication: RHEUMATOID ARTHRITIS
     Dosage: 6 DF, WEEKLY (ON FRIDAYS)
     Route: 048
     Dates: start: 1999
  2. MEDROL [Suspect]
     Active Substance: METHYLPREDNISOLONE
     Indication: RHEUMATOID ARTHRITIS
     Dosage: 1 DF, 1X/DAY
     Route: 048
     Dates: start: 1998

REACTIONS (14)
  - Road traffic accident [Unknown]
  - Arthropathy [Unknown]
  - Pain in extremity [Not Recovered/Not Resolved]
  - Suicidal ideation [Not Recovered/Not Resolved]
  - Hand deformity [Not Recovered/Not Resolved]
  - Night blindness [Not Recovered/Not Resolved]
  - Urinary tract infection [Unknown]
  - Adjustment disorder with depressed mood [Unknown]
  - Crying [Not Recovered/Not Resolved]
  - Spinal disorder [Unknown]
  - Nervousness [Not Recovered/Not Resolved]
  - Foot deformity [Not Recovered/Not Resolved]
  - Sciatic nerve neuropathy [Unknown]
  - Anxiety [Not Recovered/Not Resolved]

NARRATIVE: CASE EVENT DATE: 2015
